FAERS Safety Report 6486352-X (Version None)
Quarter: 2009Q4

REPORT INFORMATION
  Report Type: 
  Country: None (occurrence: None)
  Receive Date: 20091209
  Receipt Date: 20090729
  Transmission Date: 20100525
  Serious: No
  Sender: FDA-Public Use
  Company Number: US-AMGEN-KDL358022

PATIENT
  Sex: Female

DRUGS (2)
  1. ENBREL [Suspect]
     Indication: RHEUMATOID ARTHRITIS
     Route: 058
     Dates: start: 20090716
  2. ENBREL [Suspect]
     Indication: PSORIASIS

REACTIONS (6)
  - CHILLS [None]
  - INJECTION SITE NODULE [None]
  - INJECTION SITE RASH [None]
  - NASAL CONGESTION [None]
  - PYREXIA [None]
  - RESPIRATORY TRACT CONGESTION [None]
